FAERS Safety Report 9820757 (Version 1)
Quarter: 2014Q1

REPORT INFORMATION
  Report Type: Spontaneous
  Country: US (occurrence: None)
  Receive Date: 20140114
  Receipt Date: 20140114
  Transmission Date: 20141002
  Serious: No
  Sender: FDA-Public Use
  Company Number: None

PATIENT
  Age: 51 Year
  Sex: Female
  Weight: 54.89 kg

DRUGS (1)
  1. AZITHROMYCIN ? [Suspect]
     Indication: BRONCHITIS
     Dosage: TAKEN BY MOUTH
     Dates: start: 20140111, end: 20140111

REACTIONS (4)
  - Abdominal pain upper [None]
  - Diarrhoea [None]
  - Nausea [None]
  - Chest pain [None]
